FAERS Safety Report 21688096 (Version 2)
Quarter: 2024Q1

REPORT INFORMATION
  Report Type: Spontaneous
  Country: US (occurrence: US)
  Receive Date: 20221206
  Receipt Date: 20240131
  Transmission Date: 20240410
  Serious: Yes (Life-Threatening, Hospitalization, Other)
  Sender: FDA-Public Use
  Company Number: US-MLMSERVICE-20221123-3888950-1

PATIENT
  Age: 76 Year
  Sex: Male

DRUGS (10)
  1. SPIRONOLACTONE [Interacting]
     Active Substance: SPIRONOLACTONE
     Dosage: UNK
  2. SULFAMETHOXAZOLE\TRIMETHOPRIM [Interacting]
     Active Substance: SULFAMETHOXAZOLE\TRIMETHOPRIM
     Indication: Staphylococcal infection
     Dosage: UNK UNK, 2X/DAY (ONCE EVERY 12 HOURS)
  3. SULFAMETHOXAZOLE\TRIMETHOPRIM [Interacting]
     Active Substance: SULFAMETHOXAZOLE\TRIMETHOPRIM
     Indication: Wound infection
     Dosage: UNK UNK, 2X/DAY (ONCE EVERY 12 HOURS)
  4. AVAPRO [Concomitant]
     Active Substance: IRBESARTAN
     Dosage: UNK
  5. LYRICA [Concomitant]
     Active Substance: PREGABALIN
     Dosage: UNK
  6. CARVEDILOL [Concomitant]
     Active Substance: CARVEDILOL
     Dosage: UNK
  7. CODEINE [Concomitant]
     Active Substance: CODEINE
     Indication: Wound infection
     Dosage: UNK
  8. MINOXIDIL [Concomitant]
     Active Substance: MINOXIDIL
     Dosage: UNK
  9. TYLENOL [Concomitant]
     Active Substance: ACETAMINOPHEN
     Indication: Wound infection
     Dosage: UNK
  10. METFORMIN [Concomitant]
     Active Substance: METFORMIN HYDROCHLORIDE
     Dosage: UNK

REACTIONS (7)
  - Myocardial infarction [Recovered/Resolved]
  - Atrial fibrillation [Recovered/Resolved]
  - Myocardial necrosis [Recovered/Resolved]
  - Drug interaction [Recovered/Resolved]
  - Respiratory failure [Recovered/Resolved]
  - Renal failure [Recovered/Resolved]
  - Acute coronary syndrome [Recovered/Resolved]
